FAERS Safety Report 8730242 (Version 2)
Quarter: 2012Q4

REPORT INFORMATION
  Report Type: 
  Country: US (occurrence: US)
  Receive Date: 20120817
  Receipt Date: 20120921
  Transmission Date: 20130627
  Serious: Yes (Other)
  Sender: FDA-Public Use
  Company Number: US-UCBSA-063549

PATIENT
  Age: 47 Year
  Sex: Female
  Weight: 68 kg

DRUGS (6)
  1. VIMPAT [Suspect]
     Indication: CONVULSION
     Dosage: 200 MG BID, ON 07/SEP/2012 SHE STARTED TAKING THE DRUG EVERY OTHER DAY
     Dates: end: 201209
  2. LEXIPRO [Concomitant]
  3. LAMOTRIGINE [Concomitant]
  4. FOSAMAX [Concomitant]
  5. EPIPEN [Concomitant]
     Dosage: AS NEEDED
  6. GEMFIBROZIL [Concomitant]
     Indication: PANCREATIC DISORDER
     Dates: start: 201207

REACTIONS (4)
  - Grand mal convulsion [Recovered/Resolved]
  - Convulsion [Unknown]
  - Mental disorder [Unknown]
  - Dehydration [Unknown]
